FAERS Safety Report 19985584 (Version 2)
Quarter: 2021Q4

REPORT INFORMATION
  Report Type: Spontaneous
  Country: JP (occurrence: JP)
  Receive Date: 20211021
  Receipt Date: 20211118
  Transmission Date: 20220303
  Serious: Yes (Hospitalization)
  Sender: FDA-Public Use
  Company Number: JP-UCBJ-CD202109423UCBPHAPROD

PATIENT
  Age: 64 Year
  Sex: Female
  Weight: 49.6 kg

DRUGS (11)
  1. LEVETIRACETAM [Suspect]
     Active Substance: LEVETIRACETAM
     Indication: Epilepsy
     Dosage: 500MG .5 TAB AM AND 1 TAB EVENING
     Route: 048
     Dates: end: 20210918
  2. LEVETIRACETAM [Suspect]
     Active Substance: LEVETIRACETAM
     Dosage: 500MG .5 TAB AM AND 1 TAB EVENING
     Route: 048
     Dates: start: 20210920, end: 20210926
  3. LEVETIRACETAM [Suspect]
     Active Substance: LEVETIRACETAM
     Indication: Epilepsy
     Dosage: 500MG UNK
     Route: 041
     Dates: start: 20210918, end: 20210919
  4. LEVETIRACETAM [Suspect]
     Active Substance: LEVETIRACETAM
     Dosage: 500 MILLIGRAM, 2X/DAY (BID)
     Route: 041
     Dates: start: 20210919, end: 20210919
  5. ALFAROL [Concomitant]
     Active Substance: ALFACALCIDOL
     Indication: Product used for unknown indication
     Dosage: .5 MICROGRAM, ONCE DAILY (QD)
     Route: 048
     Dates: start: 20210920, end: 20210921
  6. ALFAROL [Concomitant]
     Active Substance: ALFACALCIDOL
     Dosage: .5 MICROGRAM, ONCE DAILY (QD)
     Route: 048
     Dates: start: 20210926, end: 20210926
  7. AMPICILLIN AND SULBACTAM [Concomitant]
     Active Substance: AMPICILLIN SODIUM\SULBACTAM SODIUM
     Indication: Pneumonia aspiration
     Dosage: 3G UNK
     Dates: start: 20210918, end: 20210919
  8. CALCIUM ASPARTATE [Concomitant]
     Active Substance: CALCIUM ASPARTATE
     Indication: Product used for unknown indication
     Dosage: UNK
  9. BETAMETHASONE BUTYRATE PROPIONATE [Concomitant]
     Active Substance: BETAMETHASONE BUTYRATE PROPIONATE
     Indication: Limb discomfort
     Dosage: UNK
  10. BECLOMETASONE DIPROPIONATE MONOHYDRATE [Concomitant]
     Indication: Erythema
     Dosage: UNK
  11. MOMETASONE FUROATE [Concomitant]
     Active Substance: MOMETASONE FUROATE
     Indication: Rash
     Dosage: UNK

REACTIONS (3)
  - Erythema [Recovering/Resolving]
  - Underdose [Unknown]
  - Off label use [Unknown]

NARRATIVE: CASE EVENT DATE: 20210926
